FAERS Safety Report 4398300-7 (Version None)
Quarter: 2004Q3

REPORT INFORMATION
  Report Type: 
  Country: None (occurrence: None)
  Receive Date: 20040712
  Receipt Date: 20040628
  Transmission Date: 20050211
  Serious: Yes (Death, Hospitalization, Other)
  Sender: FDA-Public Use
  Company Number: 2004044295

PATIENT
  Age: 63 Year
  Sex: Male

DRUGS (2)
  1. NEURONTIN [Suspect]
     Indication: NEUROPATHIC PAIN
     Dosage: 800 MG (400 MG, 2 IN 1D), ORAL
     Route: 048
     Dates: start: 20010901
  2. ENALAPRIL MALEATE [Concomitant]

REACTIONS (3)
  - BRAIN DAMAGE [None]
  - PNEUMONIA [None]
  - PYREXIA [None]
